FAERS Safety Report 13510106 (Version 1)
Quarter: 2017Q2

REPORT INFORMATION
  Report Type: Spontaneous
  Country: PL (occurrence: PL)
  Receive Date: 20170503
  Receipt Date: 20170503
  Transmission Date: 20170830
  Serious: Yes (Hospitalization)
  Sender: FDA-Public Use
  Company Number: PL-FRESENIUS KABI-FK201703513

PATIENT
  Age: 75 Year
  Sex: Female

DRUGS (3)
  1. PACLITAXEL (MANUFACTURER UNKNOWN) [Suspect]
     Active Substance: PACLITAXEL
     Indication: OVARIAN CANCER
     Route: 065
  2. PACLITAXEL (MANUFACTURER UNKNOWN) [Suspect]
     Active Substance: PACLITAXEL
     Route: 065
  3. CARBOPLATIN (MANUFACTURER UNKNOWN) [Suspect]
     Active Substance: CARBOPLATIN
     Indication: OVARIAN CANCER
     Route: 065

REACTIONS (7)
  - Anaemia [Recovered/Resolved]
  - Acute kidney injury [Recovered/Resolved]
  - Eating disorder [Recovered/Resolved]
  - Neutropenia [Recovered/Resolved]
  - Electrolyte imbalance [Recovered/Resolved]
  - Asthenia [Recovered/Resolved]
  - Cachexia [Recovered/Resolved]
